FAERS Safety Report 9405646 (Version 2)
Quarter: 2014Q2

REPORT INFORMATION
  Report Type: Spontaneous
  Country: US (occurrence: US)
  Receive Date: 20130717
  Receipt Date: 20140527
  Transmission Date: 20141212
  Serious: Yes (Hospitalization)
  Sender: FDA-Public Use
  Company Number: US-B.I. PHARMACEUTICALS,INC./RIDGEFIELD-2013-BI-20153BP

PATIENT
  Age: 57 Year
  Sex: Female

DRUGS (1)
  1. COMBIVENT [Suspect]
     Indication: CHRONIC OBSTRUCTIVE PULMONARY DISEASE
     Dosage: STRENGTH: 20 MCG / 100 ; DAILY DOSE: 160 MCG / 80
     Route: 055
     Dates: start: 20130607

REACTIONS (5)
  - Asthma [Unknown]
  - Accidental exposure to product [Unknown]
  - Overdose [Not Recovered/Not Resolved]
  - Drug effect decreased [Unknown]
  - Product quality issue [Recovered/Resolved]
